FAERS Safety Report 21033538 (Version 1)
Quarter: 2022Q2

REPORT INFORMATION
  Report Type: Spontaneous
  Country: US (occurrence: None)
  Receive Date: 20220630
  Receipt Date: 20220630
  Transmission Date: 20220721
  Serious: Yes (Disabling, Other)
  Sender: FDA-Public Use
  Company Number: None

PATIENT
  Age: 74 Year
  Sex: Female
  Weight: 72 kg

DRUGS (6)
  1. DUPIXENT [Suspect]
     Active Substance: DUPILUMAB
     Indication: Eczema
     Dosage: OTHER QUANTITY : 1 INJECTION(S);?OTHER FREQUENCY : 1EVERY 2 WEEKS;?
     Route: 058
     Dates: start: 20220604, end: 20220620
  2. Paroxantine [Concomitant]
  3. VITAMIN D [Concomitant]
     Active Substance: VITAMIN D NOS
  4. Bcomplex [Concomitant]
  5. C [Concomitant]
  6. MAGNESIUM [Concomitant]
     Active Substance: MAGNESIUM

REACTIONS (4)
  - Arthralgia [None]
  - Gait inability [None]
  - Arthritis [None]
  - Eczema [None]

NARRATIVE: CASE EVENT DATE: 20220606
